FAERS Safety Report 4899945-8 (Version None)
Quarter: 2006Q1

REPORT INFORMATION
  Report Type: 
  Country: None (occurrence: None)
  Receive Date: 20060131
  Receipt Date: 20060119
  Transmission Date: 20060701
  Serious: Yes (Other)
  Sender: FDA-Public Use
  Company Number: 2006011683

PATIENT
  Age: 79 Year
  Sex: Female
  Weight: 89.8122 kg

DRUGS (6)
  1. CELEBREX [Suspect]
     Indication: ARTHRITIS
  2. BEXTRA [Suspect]
     Indication: ILL-DEFINED DISORDER
  3. VIOXX [Suspect]
     Indication: ILL-DEFINED DISORDER
  4. NEURONTIN [Concomitant]
  5. ALL OTHER THERAPEUTIC PRODUCTS (ALL OTHER THERAPEUTIC PRODUCTS) [Concomitant]
  6. PREVACID [Concomitant]

REACTIONS (4)
  - DIABETES MELLITUS [None]
  - ERYTHEMA [None]
  - OEDEMA PERIPHERAL [None]
  - WEIGHT DECREASED [None]
